FAERS Safety Report 10683528 (Version 2)
Quarter: 2015Q1

REPORT INFORMATION
  Report Type: Report from Study
  Country: US (occurrence: US)
  Receive Date: 20141230
  Receipt Date: 20150225
  Transmission Date: 20150720
  Serious: Yes (Hospitalization, Other)
  Sender: FDA-Public Use
  Company Number: PHEH2014US026024

PATIENT
  Sex: Female

DRUGS (1)
  1. EXTAVIA [Suspect]
     Active Substance: INTERFERON BETA-1B
     Indication: PRODUCT USED FOR UNKNOWN INDICATION
     Dosage: 0.25 ML, QOD (EVERY 48 HOURS)
     Route: 058

REACTIONS (4)
  - Blood glucose increased [Recovering/Resolving]
  - Hyperosmolar hyperglycaemic state [Unknown]
  - Blood pressure increased [Recovering/Resolving]
  - Metabolic encephalopathy [Unknown]
